FAERS Safety Report 5355223-4 (Version None)
Quarter: 2007Q2

REPORT INFORMATION
  Report Type: 
  Country: None (occurrence: None)
  Receive Date: 20070525
  Receipt Date: 20060821
  Transmission Date: 20071010
  Serious: Yes (Other)
  Sender: FDA-Public Use
  Company Number: 1-14101206/MED-06125

PATIENT
  Sex: Male

DRUGS (1)
  1. BACTRIM [Suspect]
     Indication: EAR INFECTION
     Dosage: 1 TEASPOON TWICE DAILY, ORAL
     Route: 048
     Dates: start: 19850422, end: 19850506

REACTIONS (1)
  - STEVENS-JOHNSON SYNDROME [None]
